FAERS Safety Report 4601052-6 (Version None)
Quarter: 2005Q1

REPORT INFORMATION
  Report Type: 
  Country: None (occurrence: None)
  Receive Date: 20050307
  Receipt Date: 20050307
  Transmission Date: 20050727
  Serious: Yes (Death, Hospitalization)
  Sender: FDA-Public Use
  Company Number: None

PATIENT
  Age: 54 Year
  Sex: Male
  Weight: 98.4306 kg

DRUGS (10)
  1. IRINOTECAN      100MG/5ML      PHARMACIA UPJOHN [Suspect]
     Indication: PANCREATIC CARCINOMA METASTATIC
     Dosage: 160MG/M2   Q21 DAYS   INTRAVENOU
     Route: 042
     Dates: start: 20050126, end: 20050126
  2. DOCETAXEL     80MG/ML     AVENTIS [Suspect]
     Indication: PANCREATIC CARCINOMA METASTATIC
     Dosage: 65MG/M2   Q21 DAYS   INTRAVENOU
     Route: 042
     Dates: start: 20050126, end: 20050126
  3. OXYCODONE HCL [Concomitant]
  4. ALLEGRA [Concomitant]
  5. PLENDIL [Concomitant]
  6. PEPCID [Concomitant]
  7. OXYCONTIN [Concomitant]
  8. KYTRIL [Concomitant]
  9. DECADRON [Concomitant]
  10. PROCRIT [Concomitant]

REACTIONS (6)
  - BILE DUCT OBSTRUCTION [None]
  - DISEASE PROGRESSION [None]
  - HEPATIC NEOPLASM [None]
  - HEPATOTOXICITY [None]
  - LIVER DISORDER [None]
  - PYREXIA [None]
